FAERS Safety Report 9511386 (Version 1)
Quarter: 2013Q3

REPORT INFORMATION
  Report Type: Spontaneous
  Country: US (occurrence: None)
  Receive Date: 20130906
  Receipt Date: 20130906
  Transmission Date: 20140515
  Serious: Yes (Hospitalization)
  Sender: FDA-Public Use
  Company Number: 2013HINLIT0144

PATIENT
  Age: 42 Year
  Sex: 0

DRUGS (2)
  1. LITHIUM (LITHIUM) UNKNOWN [Suspect]
     Dosage: 300 MG, PER DAY, UNKNOWN
  2. VENLAFAXINE [Suspect]
     Dosage: 225 MG ORALLY, FOR TREATMENT OF UNKNOWN INDICATION

REACTIONS (8)
  - Serotonin syndrome [None]
  - Depression [None]
  - Suicidal ideation [None]
  - Pyrexia [None]
  - Confusional state [None]
  - Leukocytosis [None]
  - Blood creatine phosphokinase increased [None]
  - Agitation [None]
